FAERS Safety Report 5400063-0 (Version None)
Quarter: 2007Q3

REPORT INFORMATION
  Report Type: 
  Country: None (occurrence: None)
  Receive Date: 20070730
  Receipt Date: 20070718
  Transmission Date: 20080115
  Serious: Yes (Hospitalization)
  Sender: FDA-Public Use
  Company Number: US-NOVOPROD-265749

PATIENT

DRUGS (1)
  1. NORDITROPIN NORDIFLEX [Suspect]
     Indication: GONADAL DYSGENESIS
     Dosage: .65 MG, UNK
     Route: 058
     Dates: start: 20070618

REACTIONS (1)
  - TYPE 1 DIABETES MELLITUS [None]
